FAERS Safety Report 20026460 (Version 2)
Quarter: 2021Q4

REPORT INFORMATION
  Report Type: Spontaneous
  Country: JP (occurrence: JP)
  Receive Date: 20211102
  Receipt Date: 20211122
  Transmission Date: 20220303
  Serious: Yes (Hospitalization)
  Sender: FDA-Public Use
  Company Number: JP-SCALL-2021-JP-000521

PATIENT
  Age: 44 Year
  Sex: Male

DRUGS (1)
  1. DUTASTERIDE [Suspect]
     Active Substance: DUTASTERIDE
     Indication: Androgenetic alopecia
     Route: 065

REACTIONS (3)
  - Intervertebral disc protrusion [Unknown]
  - Product use in unapproved indication [Unknown]
  - Neuralgia [Unknown]
